FAERS Safety Report 12421388 (Version 4)
Quarter: 2016Q2

REPORT INFORMATION
  Report Type: Report from Study
  Country: DE (occurrence: DE)
  Receive Date: 20160531
  Receipt Date: 20160628
  Transmission Date: 20160815
  Serious: Yes (Hospitalization, Other)
  Sender: FDA-Public Use
  Company Number: DE-JNJFOC-20160518762

PATIENT
  Age: 3 Decade
  Sex: Female
  Weight: 54 kg

DRUGS (5)
  1. CLAVERSAL [Concomitant]
     Active Substance: MESALAMINE
     Indication: CROHN^S DISEASE
     Route: 065
     Dates: start: 2012
  2. REMICADE [Suspect]
     Active Substance: INFLIXIMAB
     Indication: CROHN^S DISEASE
     Route: 042
     Dates: start: 20140131
  3. REMICADE [Suspect]
     Active Substance: INFLIXIMAB
     Indication: CROHN^S DISEASE
     Route: 042
     Dates: start: 20160414
  4. REMICADE [Suspect]
     Active Substance: INFLIXIMAB
     Indication: CROHN^S DISEASE
     Route: 042
     Dates: start: 20150929
  5. REMICADE [Suspect]
     Active Substance: INFLIXIMAB
     Indication: CROHN^S DISEASE
     Route: 042
     Dates: start: 20160404

REACTIONS (18)
  - Endometriosis [Unknown]
  - Large intestinal stenosis [Unknown]
  - Rectal fissure [Recovered/Resolved]
  - Pruritus [Unknown]
  - Anal fissure [Recovered/Resolved]
  - Diarrhoea [Unknown]
  - Intestinal stenosis [Recovered/Resolved]
  - Anal abscess [Recovered/Resolved]
  - Proctitis ulcerative [Recovered/Resolved]
  - Headache [Not Recovered/Not Resolved]
  - Flatulence [Unknown]
  - Anal stenosis [Recovered/Resolved]
  - Haematochezia [Unknown]
  - Abdominal pain lower [Unknown]
  - Anal fistula [Recovered/Resolved]
  - Constipation [Unknown]
  - Initial insomnia [Unknown]
  - Fistula [Unknown]

NARRATIVE: CASE EVENT DATE: 20140131
